FAERS Safety Report 6941345-0 (Version None)
Quarter: 2010Q3

REPORT INFORMATION
  Report Type: 
  Country: None (occurrence: None)
  Receive Date: 20100825
  Receipt Date: 20100817
  Transmission Date: 20110219
  Serious: Yes (Other)
  Sender: FDA-Public Use
  Company Number: US-EISAI INC.-E3810-04001-SPO-US

PATIENT
  Sex: Male

DRUGS (3)
  1. ACIPHEX [Suspect]
     Route: 048
     Dates: start: 20100630, end: 20100101
  2. PREDNISONE [Concomitant]
     Route: 048
  3. AZATHIOPRINE [Concomitant]
     Route: 048
     Dates: start: 20000901

REACTIONS (2)
  - NECK PAIN [None]
  - PNEUMONIA [None]
